FAERS Safety Report 5385186-7 (Version None)
Quarter: 2007Q3

REPORT INFORMATION
  Report Type: 
  Country: None (occurrence: None)
  Receive Date: 20070706
  Receipt Date: 20060525
  Transmission Date: 20080115
  Serious: Yes (Other)
  Sender: FDA-Public Use
  Company Number: M-06-0422

PATIENT
  Sex: Male

DRUGS (5)
  1. PACERONE [Suspect]
  2. CORDARONE [Suspect]
  3. AMIODARONE HCL [Suspect]
  4. AMIODARONE HCL [Suspect]
  5. AMIODARONE HCL [Suspect]

REACTIONS (1)
  - PULMONARY FIBROSIS [None]
